FAERS Safety Report 8171324 (Version 4)
Quarter: 2012Q4

REPORT INFORMATION
  Report Type: 
  Country: FR (occurrence: FR)
  Receive Date: 20111006
  Receipt Date: 20121030
  Transmission Date: 20130627
  Serious: Yes (Hospitalization)
  Sender: FDA-Public Use
  Company Number: FR-BRISTOL-MYERS SQUIBB COMPANY-16125627

PATIENT
  Age: 48 Year
  Sex: Male
  Weight: 83 kg

DRUGS (4)
  1. REYATAZ CAPS [Suspect]
     Indication: HIV INFECTION
     Dates: start: 20060313, end: 20081013
  2. COMBIVIR [Suspect]
     Indication: HIV INFECTION
     Dates: start: 20060313, end: 20110330
  3. INTELENCE [Suspect]
     Indication: HIV INFECTION
     Dates: start: 20081013
  4. RITONAVIR [Suspect]
     Indication: HIV INFECTION

REACTIONS (4)
  - Cholelithiasis [Recovered/Resolved with Sequelae]
  - Nephrolithiasis [Recovered/Resolved with Sequelae]
  - Cholangitis [Recovered/Resolved with Sequelae]
  - Cholecystitis [Recovered/Resolved with Sequelae]
